FAERS Safety Report 10176233 (Version 1)
Quarter: 2014Q2

REPORT INFORMATION
  Report Type: Spontaneous
  Country: BR (occurrence: BR)
  Receive Date: 20140516
  Receipt Date: 20140516
  Transmission Date: 20141212
  Serious: Yes (Hospitalization, Other)
  Sender: FDA-Public Use
  Company Number: BR-ASTRAZENECA-2014SE31991

PATIENT
  Age: 60 Year
  Sex: Female
  Weight: 85 kg

DRUGS (2)
  1. ATACAND [Suspect]
     Indication: HYPERTENSION
     Route: 048
     Dates: start: 2009
  2. SELOZOK [Suspect]
     Indication: HEART RATE INCREASED
     Route: 048
     Dates: start: 2004

REACTIONS (6)
  - Hypertension [Recovered/Resolved]
  - Spinal column injury [Recovering/Resolving]
  - Cataract [Recovered/Resolved]
  - Synovial rupture [Recovered/Resolved]
  - Musculoskeletal discomfort [Not Recovered/Not Resolved]
  - Synovial cyst [Recovered/Resolved]
